FAERS Safety Report 7131950-3 (Version None)
Quarter: 2010Q4

REPORT INFORMATION
  Report Type: 
  Country: None (occurrence: None)
  Receive Date: 20101202
  Receipt Date: 20101129
  Transmission Date: 20110411
  Serious: No
  Sender: FDA-Public Use
  Company Number: US-TEVA-257459USA

PATIENT
  Age: 74 Year
  Sex: Female

DRUGS (13)
  1. ALBUTEROL SULFATE AUTOHALER [Suspect]
     Indication: CHRONIC OBSTRUCTIVE PULMONARY DISEASE
     Route: 055
     Dates: start: 20100801
  2. BROVANA [Suspect]
     Indication: CHRONIC OBSTRUCTIVE PULMONARY DISEASE
     Dosage: 15 UG/2ML
     Dates: start: 20101001
  3. IPRATROPIUM BROMIDE [Suspect]
     Indication: CHRONIC OBSTRUCTIVE PULMONARY DISEASE
     Route: 055
     Dates: start: 20100801
  4. IPRATROPIUM BROMIDE [Concomitant]
     Dates: start: 20100801
  5. VERAPAMIL [Concomitant]
  6. ATENOLOL [Concomitant]
  7. OMEPRAZOLE [Concomitant]
  8. LORAZEPAM [Concomitant]
  9. ALENDRONATE SODIUM [Concomitant]
  10. THEOPHYLLINE [Concomitant]
  11. LETROZOLE [Concomitant]
  12. CALCIUM CARBONATE [Concomitant]
  13. FORMOTEROL FUMARATE [Concomitant]

REACTIONS (1)
  - TOOTH DISCOLOURATION [None]
